FAERS Safety Report 19892205 (Version 1)
Quarter: 2021Q3

REPORT INFORMATION
  Report Type: Spontaneous
  Country: JP (occurrence: JP)
  Receive Date: 20210929
  Receipt Date: 20210929
  Transmission Date: 20211014
  Serious: Yes (Other)
  Sender: FDA-Public Use
  Company Number: JP-ROCHE-2922479

PATIENT
  Age: 8 Decade

DRUGS (2)
  1. PREDNISOLONE. [Suspect]
     Active Substance: PREDNISOLONE
     Indication: GIANT CELL ARTERITIS
     Dosage: 20 MILLIGRAM, QD
     Route: 048
  2. ACTEMRA [Suspect]
     Active Substance: TOCILIZUMAB
     Indication: GIANT CELL ARTERITIS
     Dosage: 162 MILLIGRAM, ONCE/WEEK
     Route: 058

REACTIONS (1)
  - Pneumonia cryptococcal [Not Recovered/Not Resolved]
